FAERS Safety Report 11207314 (Version 1)
Quarter: 2015Q2

REPORT INFORMATION
  Report Type: Report from Study
  Country: US (occurrence: US)
  Receive Date: 20150622
  Receipt Date: 20150622
  Transmission Date: 20150821
  Serious: No
  Sender: FDA-Public Use
  Company Number: US-ABBVIE-15P-163-1378832-00

PATIENT
  Sex: Male

DRUGS (3)
  1. VIEKIRA PAK [Suspect]
     Active Substance: DASABUVIR\OMBITASVIR\PARITAPREVIR\RITONAVIR
     Indication: HEPATITIS C
     Dosage: TAKE 2 PINK TABLETS ONCE DAILY (AM) + 1 BEIGE TABLET TWICE DAILY (AM + PM) WITH FOOD
     Route: 048
     Dates: start: 20150328, end: 20150520
  2. RIBAVIRIN. [Suspect]
     Active Substance: RIBAVIRIN
     Indication: PRODUCT USED FOR UNKNOWN INDICATION
     Route: 048
     Dates: end: 20150520
  3. VIEKIRA PAK [Suspect]
     Active Substance: DASABUVIR\OMBITASVIR\PARITAPREVIR\RITONAVIR
     Dosage: TAKE 2 PINK TABLETS ONCE DAILY (AM) + 1 BEIGE TABLET TWICE DAILY (AM + PM) WITH FOOD
     Route: 048
     Dates: start: 20150521, end: 20150525

REACTIONS (9)
  - Abdominal pain [Recovering/Resolving]
  - Iron deficiency [Recovering/Resolving]
  - Somnolence [Recovering/Resolving]
  - Anger [Recovering/Resolving]
  - Dyspnoea [Recovering/Resolving]
  - Anaemia [Recovering/Resolving]
  - Nausea [Recovering/Resolving]
  - Cough [Recovering/Resolving]
  - Asthenia [Recovering/Resolving]
